FAERS Safety Report 24789035 (Version 2)
Quarter: 2025Q1

REPORT INFORMATION
  Report Type: Report from Study
  Country: US (occurrence: US)
  Receive Date: 20241230
  Receipt Date: 20250121
  Transmission Date: 20250408
  Serious: Yes (Hospitalization, Other)
  Sender: ABBVIE
  Company Number: US-ABBVIE-6064740

PATIENT
  Age: 23 Year
  Sex: Female
  Weight: 63 kg

DRUGS (2)
  1. SKYRIZI [Suspect]
     Active Substance: RISANKIZUMAB-RZAA
     Indication: Crohn^s disease
     Dosage: FORM STRENGTH:360 MG
     Route: 058
     Dates: start: 202309
  2. SKYRIZI [Suspect]
     Active Substance: RISANKIZUMAB-RZAA
     Indication: Crohn^s disease
     Dosage: FORM STRENGTH: 600 MILLIGRAM
     Route: 042
     Dates: start: 202306, end: 202308

REACTIONS (8)
  - Abdominal adhesions [Recovered/Resolved]
  - Injection site swelling [Recovered/Resolved]
  - Injection site pruritus [Recovered/Resolved]
  - Device issue [Not Recovered/Not Resolved]
  - Injection site haemorrhage [Recovered/Resolved]
  - Intestinal obstruction [Recovered/Resolved]
  - Abdominal pain upper [Recovered/Resolved]
  - Gastrointestinal disorder [Recovered/Resolved]

NARRATIVE: CASE EVENT DATE: 20240701
